FAERS Safety Report 21330247 (Version 1)
Quarter: 2022Q3

REPORT INFORMATION
  Report Type: Spontaneous
  Country: US (occurrence: US)
  Receive Date: 20220913
  Receipt Date: 20220913
  Transmission Date: 20221026
  Serious: No
  Sender: FDA-Public Use
  Company Number: US-SUNOVION-2022SUN002555AA

PATIENT
  Sex: Female

DRUGS (1)
  1. XOPENEX [Suspect]
     Active Substance: LEVALBUTEROL HYDROCHLORIDE
     Dosage: UNK, Q4H
     Route: 055

REACTIONS (7)
  - Condition aggravated [Unknown]
  - Oropharyngeal pain [Unknown]
  - Headache [Unknown]
  - Throat irritation [Unknown]
  - Product storage error [Unknown]
  - Product physical issue [Unknown]
  - Overdose [Unknown]
